FAERS Safety Report 18363299 (Version 1)
Quarter: 2020Q4

REPORT INFORMATION
  Report Type: Spontaneous
  Country: US (occurrence: US)
  Receive Date: 20201008
  Receipt Date: 20201008
  Transmission Date: 20210114
  Serious: No
  Sender: FDA-Public Use
  Company Number: US-EUSA PHARMA (NETHERLANDS) B.V.-2020US000232

PATIENT
  Sex: Male

DRUGS (1)
  1. SYLVANT [Suspect]
     Active Substance: SILTUXIMAB
     Indication: CASTLEMAN^S DISEASE
     Dosage: UNK
     Route: 065

REACTIONS (1)
  - Interleukin level increased [Recovering/Resolving]
